FAERS Safety Report 8941719 (Version 3)
Quarter: 2013Q2

REPORT INFORMATION
  Report Type: Report from Study
  Country: IT (occurrence: IT)
  Receive Date: 20121203
  Receipt Date: 20130617
  Transmission Date: 20140414
  Serious: Yes (Hospitalization)
  Sender: FDA-Public Use
  Company Number: PHHY2012IT110018

PATIENT
  Age: 61 Year
  Sex: Male
  Weight: 78 kg

DRUGS (2)
  1. CERTICAN [Suspect]
     Indication: IMMUNOSUPPRESSION
     Dosage: 0.75 MG, UNK
     Route: 048
     Dates: start: 20070607
  2. LORTAN [Concomitant]
     Indication: HYPERTENSION
     Dosage: UNK UKN, UNK
     Dates: start: 20050214, end: 20120202

REACTIONS (6)
  - Renal failure chronic [Unknown]
  - Prostatitis [Recovered/Resolved]
  - Hyperpyrexia [Recovering/Resolving]
  - Haematuria [Unknown]
  - Inflammation [Recovered/Resolved]
  - Pericardial effusion [Unknown]
